FAERS Safety Report 11178165 (Version 1)
Quarter: 2015Q2

REPORT INFORMATION
  Report Type: Spontaneous
  Country: US (occurrence: None)
  Receive Date: 20150515
  Receipt Date: 20150515
  Transmission Date: 20150821
  Serious: Yes (Hospitalization)
  Sender: FDA-Public Use
  Company Number: 2015000817

PATIENT

DRUGS (4)
  1. IMURAN (AZATHIPRINE) [Concomitant]
  2. CIMZIA [Suspect]
     Active Substance: CERTOLIZUMAB PEGOL
     Indication: PRODUCT USED FOR UNKNOWN INDICATION
  3. PREDNISONE. [Concomitant]
     Active Substance: PREDNISONE
  4. BENTYL (DICYCLOVERINE HYDROCHLORIDE) [Concomitant]

REACTIONS (2)
  - Drug ineffective [None]
  - Crohn^s disease [None]
